FAERS Safety Report 9804367 (Version 3)
Quarter: 2014Q3

REPORT INFORMATION
  Report Type: Spontaneous
  Country: US (occurrence: US)
  Receive Date: 20140108
  Receipt Date: 20140905
  Transmission Date: 20150326
  Serious: Yes (Hospitalization, Other)
  Sender: FDA-Public Use
  Company Number: US-009507513-1401USA002634

PATIENT
  Age: 37 Year
  Sex: Female

DRUGS (1)
  1. NUVARING [Suspect]
     Active Substance: ETHINYL ESTRADIOL\ETONOGESTREL
     Indication: HOT FLUSH
     Dosage: UNK, 3 WEEKS OUT OF 4
     Route: 067
     Dates: start: 200303, end: 20030505

REACTIONS (21)
  - Hyperhidrosis [Unknown]
  - Vertigo [Unknown]
  - Gastrooesophageal reflux disease [Not Recovered/Not Resolved]
  - Hypercoagulation [Unknown]
  - Chest pain [Unknown]
  - Upper-airway cough syndrome [Unknown]
  - Pulmonary embolism [Unknown]
  - Dizziness [Unknown]
  - Chest discomfort [Unknown]
  - Asthma [Unknown]
  - Muscle strain [Unknown]
  - Arthropathy [Unknown]
  - Cholecystectomy [Unknown]
  - Pulmonary embolism [Unknown]
  - Pulmonary embolism [Unknown]
  - Carpal tunnel syndrome [Unknown]
  - Off label use [Recovered/Resolved]
  - Constipation [Unknown]
  - Headache [Unknown]
  - International normalised ratio decreased [Unknown]
  - Dyspnoea exertional [Unknown]

NARRATIVE: CASE EVENT DATE: 200303
